FAERS Safety Report 17185312 (Version 1)
Quarter: 2019Q4

REPORT INFORMATION
  Report Type: Spontaneous
  Country: US (occurrence: US)
  Receive Date: 20191220
  Receipt Date: 20191220
  Transmission Date: 20200122
  Serious: No
  Sender: FDA-Public Use
  Company Number: US-THERAPEUTICSMD-2019TMD03614

PATIENT
  Sex: Female

DRUGS (3)
  1. UNSPECIFIED ESTRADIOL [Suspect]
     Active Substance: ESTRADIOL
     Dosage: UNK
  2. UNSPECIFIED SUPPLEMENTAL PILLS [Suspect]
     Active Substance: UNSPECIFIED INGREDIENT
     Dosage: UNK
  3. IMVEXXY [Suspect]
     Active Substance: ESTRADIOL
     Dosage: UNK

REACTIONS (3)
  - Vulvovaginal burning sensation [Unknown]
  - Lichen sclerosus [Unknown]
  - Vaginal erosion [Unknown]
